FAERS Safety Report 21352109 (Version 1)
Quarter: 2022Q3

REPORT INFORMATION
  Report Type: Report from Study
  Country: US (occurrence: US)
  Receive Date: 20220920
  Receipt Date: 20220920
  Transmission Date: 20221027
  Serious: Yes (Hospitalization, Other)
  Sender: FDA-Public Use
  Company Number: US-CELGENE-USA-20210601048

PATIENT
  Age: 76 Year
  Sex: Female

DRUGS (18)
  1. REVLIMID [Suspect]
     Active Substance: LENALIDOMIDE
     Indication: Plasma cell myeloma
     Dosage: 21 DAYS ON, 7 DAYS OFF
     Route: 048
     Dates: start: 20130711, end: 20130806
  2. DEXAMETHASONE [Suspect]
     Active Substance: DEXAMETHASONE
     Indication: Plasma cell myeloma
     Dosage: 5.7143 MILLIGRAM
     Route: 048
     Dates: start: 20130711, end: 20130806
  3. DEXAMETHASONE [Suspect]
     Active Substance: DEXAMETHASONE
     Dosage: FREQUENCY TEXT: D1-4,9-12 C1+2 THEN QW
     Route: 048
     Dates: start: 20130813, end: 20140204
  4. DEXAMETHASONE [Suspect]
     Active Substance: DEXAMETHASONE
     Dosage: FREQUENCY TEXT: TAKE ON DAYS OF CARFILZOMIB
     Route: 048
     Dates: start: 20170906, end: 20180517
  5. DEXAMETHASONE [Suspect]
     Active Substance: DEXAMETHASONE
     Dosage: FREQUENCY TEXT: D1,2,8,9,15,16,22,23 Q28D
     Route: 048
     Dates: start: 20180606, end: 20190212
  6. DEXAMETHASONE [Suspect]
     Active Substance: DEXAMETHASONE
     Dosage: FREQUENCY TEXT: ONLY ON VELCADE DAYS
     Route: 048
     Dates: start: 20190213, end: 20190517
  7. DEXAMETHASONE [Suspect]
     Active Substance: DEXAMETHASONE
     Dosage: 4 MILLIGRAM
     Route: 048
     Dates: start: 20190606, end: 20200106
  8. EMPLICITI [Suspect]
     Active Substance: ELOTUZUMAB
     Indication: Plasma cell myeloma
     Dosage: 1.4286 MILLIGRAM/KILOGRAM
     Route: 042
     Dates: start: 20190606, end: 20200106
  9. POMALIDOMIDE [Suspect]
     Active Substance: POMALIDOMIDE
     Indication: Plasma cell myeloma
     Dosage: FREQUENCY TEXT: QD X21D OF 28D CYCLE?4 MICROGRAM/SQ. METER
     Route: 048
     Dates: start: 20190606, end: 20200106
  10. VELCADE [Suspect]
     Active Substance: BORTEZOMIB
     Indication: Plasma cell myeloma
     Dosage: 2X WEEKLY, DAYS 1 AND 4 Q 7D, 1 WK OFF Q 14D
     Route: 058
     Dates: start: 20130813, end: 20140211
  11. VELCADE [Suspect]
     Active Substance: BORTEZOMIB
     Dosage: 1X WEEKLY, NO REST PERIOD: DAY 1 Q 7D
     Route: 058
     Dates: start: 20180606, end: 20190305
  12. VELCADE [Suspect]
     Active Substance: BORTEZOMIB
     Dosage: FREQUENCY TEXT: D1 + D15 ONLY
     Route: 058
     Dates: start: 20190306, end: 20190508
  13. MELPHALAN [Suspect]
     Active Substance: MELPHALAN
     Indication: Plasma cell myeloma
     Dosage: DIVIDED DOSE OVER 2D
     Route: 042
     Dates: start: 20140403, end: 20140404
  14. CYTOXAN [Suspect]
     Active Substance: CYCLOPHOSPHAMIDE
     Indication: Plasma cell myeloma
     Dosage: FREQUENCY TEXT: NOT PROVIDED
     Route: 042
     Dates: start: 20200306, end: 20200316
  15. DOXORUBICIN [Suspect]
     Active Substance: DOXORUBICIN
     Indication: Plasma cell myeloma
     Dosage: FREQUENCY TEXT: NOT PROVIDED
     Route: 042
     Dates: start: 20200306, end: 20200316
  16. CARFILZOMIB [Suspect]
     Active Substance: CARFILZOMIB
     Indication: Plasma cell myeloma
     Dosage: FREQUENCY TEXT: D1,2,8,9,15,16 Q28D
     Route: 042
     Dates: start: 20170906, end: 20180517
  17. DARZALEX [Suspect]
     Active Substance: DARATUMUMAB
     Indication: Plasma cell myeloma
     Dosage: .7619 MILLIGRAM/KILOGRAM
     Route: 042
     Dates: start: 20180606, end: 20190517
  18. PAVURUTAMAB [Suspect]
     Active Substance: PAVURUTAMAB
     Indication: Plasma cell myeloma
     Dosage: FREQUENCY TEXT: NOT PROVIDED
     Route: 042
     Dates: start: 20200205, end: 20200227

REACTIONS (2)
  - Plasma cell myeloma recurrent [Unknown]
  - Cytokine release syndrome [Unknown]

NARRATIVE: CASE EVENT DATE: 20200205
